FAERS Safety Report 21356269 (Version 5)
Quarter: 2022Q4

REPORT INFORMATION
  Report Type: Spontaneous
  Country: US (occurrence: US)
  Receive Date: 20220920
  Receipt Date: 20221104
  Transmission Date: 20230112
  Serious: Yes (Other)
  Sender: FDA-Public Use
  Company Number: US-PFIZER INC-202201170864

PATIENT
  Age: 60 Year
  Sex: Female
  Weight: 80.74 kg

DRUGS (9)
  1. PAXLOVID [Suspect]
     Active Substance: NIRMATRELVIR\RITONAVIR
     Indication: COVID-19 treatment
     Dosage: 3 DF, 2X/DAY [PF-07321332 300 MG]/[RITONAVIR 100 MG]
     Dates: start: 20220917, end: 20220921
  2. PAXLOVID [Suspect]
     Active Substance: NIRMATRELVIR\RITONAVIR
     Indication: Bronchial secretion retention
  3. PAXLOVID [Suspect]
     Active Substance: NIRMATRELVIR\RITONAVIR
     Indication: Cardiac disorder
  4. PAXLOVID [Suspect]
     Active Substance: NIRMATRELVIR\RITONAVIR
     Indication: Productive cough
  5. ELIQUIS [Suspect]
     Active Substance: APIXABAN
     Indication: Anticoagulant therapy
     Dosage: UNK, 2X/DAY
     Dates: start: 201612
  6. ELIQUIS [Suspect]
     Active Substance: APIXABAN
     Indication: Heart rate irregular
  7. DIGOXIN [Concomitant]
     Active Substance: DIGOXIN
     Dosage: UNK
     Dates: start: 2010
  8. LISINOPRIL [Concomitant]
     Active Substance: LISINOPRIL
     Dosage: UNK
     Route: 005
     Dates: start: 2013
  9. SOTALOL [Concomitant]
     Active Substance: SOTALOL
     Dosage: UNK
     Dates: start: 2015

REACTIONS (7)
  - Rectal haemorrhage [Recovered/Resolved]
  - Haematochezia [Recovered/Resolved]
  - Diarrhoea [Recovered/Resolved]
  - Dysgeusia [Recovered/Resolved]
  - Intentional product use issue [Unknown]
  - Proctalgia [Unknown]
  - Swelling [Unknown]

NARRATIVE: CASE EVENT DATE: 20220901
